FAERS Safety Report 23970991 (Version 1)
Quarter: 2024Q2

REPORT INFORMATION
  Report Type: Report from Study
  Country: DE (occurrence: DE)
  Receive Date: 20240613
  Receipt Date: 20240613
  Transmission Date: 20240716
  Serious: Yes (Hospitalization, Disabling)
  Sender: FDA-Public Use
  Company Number: DE-002147023-NVSC2024DE121438

PATIENT
  Sex: Male
  Weight: 90 kg

DRUGS (2)
  1. LEQVIO [Suspect]
     Active Substance: INCLISIRAN SODIUM
     Indication: Primary hypercholesterolaemia
     Dosage: 284 MG
     Route: 058
     Dates: start: 20231218, end: 20240318
  2. LEQVIO [Suspect]
     Active Substance: INCLISIRAN SODIUM
     Indication: Type IIa hyperlipidaemia

REACTIONS (4)
  - Infarction [Recovered/Resolved with Sequelae]
  - Hemiparesis [Unknown]
  - Aphasia [Unknown]
  - Dysphagia [Unknown]

NARRATIVE: CASE EVENT DATE: 20240131
